FAERS Safety Report 4869316-9 (Version None)
Quarter: 2005Q4

REPORT INFORMATION
  Report Type: 
  Country: None (occurrence: None)
  Receive Date: 20051230
  Receipt Date: 20051227
  Transmission Date: 20060501
  Serious: Yes (Life-Threatening, Hospitalization, Other)
  Sender: FDA-Public Use
  Company Number: 2005UW19429

PATIENT
  Age: 45 Year
  Sex: Male
  Weight: 101 kg

DRUGS (21)
  1. ELAVIL [Suspect]
     Indication: DEPRESSION
     Route: 048
     Dates: start: 20000301, end: 20051124
  2. ELAVIL [Suspect]
     Indication: INSOMNIA
     Route: 048
     Dates: start: 20000301, end: 20051124
  3. NAPROSYN [Suspect]
     Indication: PAIN
     Route: 048
     Dates: start: 20000111, end: 20051124
  4. NAPROSYN [Suspect]
     Route: 048
     Dates: start: 20051129
  5. PEG-INTRON [Suspect]
     Indication: HEPATITIS C
     Dosage: DOSE BLINDED
     Route: 058
     Dates: start: 20041012, end: 20050913
  6. REBETOL [Suspect]
     Indication: HEPATITIS C
     Route: 048
     Dates: start: 20041012, end: 20050913
  7. GLIPIZIDE [Concomitant]
     Indication: DIABETES MELLITUS
     Dates: start: 20041010
  8. CAPTOPRIL [Concomitant]
     Indication: HYPERTENSION
     Dates: start: 20011127
  9. ZOLOFT [Concomitant]
     Indication: DEPRESSION
     Dates: start: 20041004
  10. LIPITOR [Concomitant]
     Indication: HYPERCHOLESTEROLAEMIA
     Dates: start: 20040804
  11. VICODIN [Concomitant]
     Indication: PAIN
     Dosage: 325-650 MG (1-2 DF)
     Dates: start: 20000111, end: 20051124
  12. PERCOCET [Concomitant]
  13. GLUCOPHAGE [Concomitant]
     Indication: DIABETES MELLITUS
     Dates: start: 20020111
  14. GUAIFENESIN [Concomitant]
  15. PEPCID [Concomitant]
  16. LEVOFLOXACIN [Concomitant]
  17. TRAZODONE [Concomitant]
  18. DOCUSATE [Concomitant]
  19. NEURONTIN [Concomitant]
  20. DULOXETINE [Concomitant]
  21. COMBIVENT [Concomitant]

REACTIONS (8)
  - DRUG SCREEN POSITIVE [None]
  - ENCEPHALOPATHY [None]
  - HYPOTENSION [None]
  - HYPOXIA [None]
  - LOSS OF CONSCIOUSNESS [None]
  - OVERDOSE [None]
  - PNEUMONIA ASPIRATION [None]
  - TACHYCARDIA [None]
